FAERS Safety Report 22023599 (Version 3)
Quarter: 2024Q4

REPORT INFORMATION
  Report Type: Spontaneous
  Country: CZ (occurrence: CZ)
  Receive Date: 20230223
  Receipt Date: 20241019
  Transmission Date: 20250115
  Serious: Yes (Other)
  Sender: ABBVIE
  Company Number: CZ-ABBVIE-4315966

PATIENT
  Age: 76 Year
  Sex: Male

DRUGS (2)
  1. VENETOCLAX [Suspect]
     Active Substance: VENETOCLAX
     Indication: Myelodysplastic syndrome
     Route: 048
     Dates: start: 20211206
  2. CYTARABINE [Suspect]
     Active Substance: CYTARABINE
     Indication: Myelodysplastic syndrome
     Route: 065
     Dates: start: 20211206

REACTIONS (3)
  - Myelodysplastic syndrome [Unknown]
  - Off label use [Unknown]
  - Neutropenia [Unknown]
